FAERS Safety Report 10678111 (Version 1)
Quarter: 2014Q4

REPORT INFORMATION
  Report Type: Spontaneous
  Country: TN (occurrence: None)
  Receive Date: 20141223
  Receipt Date: 20141223
  Transmission Date: 20150529
  Serious: No
  Sender: FDA-Public Use
  Company Number: TN-2014-4813

PATIENT
  Age: 44 Year
  Sex: Female
  Weight: 80 kg

DRUGS (1)
  1. NAVELBINE [Suspect]
     Active Substance: VINORELBINE TARTRATE
     Indication: PRODUCT USED FOR UNKNOWN INDICATION
     Dosage: 30 MG/M2, DAY 1 AND 8, CYCLICAL (1/21) INTRAVENOUS
     Route: 042
     Dates: start: 20140120

REACTIONS (4)
  - Decreased appetite [None]
  - Vomiting [None]
  - Renal pain [None]
  - Dehydration [None]

NARRATIVE: CASE EVENT DATE: 20140303
